FAERS Safety Report 17363972 (Version 2)
Quarter: 2020Q1

REPORT INFORMATION
  Report Type: Spontaneous
  Country: DE (occurrence: DE)
  Receive Date: 20200203
  Receipt Date: 20200205
  Transmission Date: 20200409
  Serious: Yes (Hospitalization, Other)
  Sender: FDA-Public Use
  Company Number: DE-AUROBINDO-AUR-APL-2020-004703

PATIENT
  Age: 50 Year
  Sex: Male
  Weight: 95 kg

DRUGS (7)
  1. CLOBAZAM. [Suspect]
     Active Substance: CLOBAZAM
     Indication: PRODUCT USED FOR UNKNOWN INDICATION
     Dosage: UNK (1 TOTAL)
     Route: 065
     Dates: start: 20200107, end: 20200107
  2. PARACETAMOL [Suspect]
     Active Substance: ACETAMINOPHEN
     Indication: PRODUCT USED FOR UNKNOWN INDICATION
     Dosage: UNK (1 TOTAL)
     Route: 065
     Dates: start: 20200107, end: 20200107
  3. PERAMPANEL [Suspect]
     Active Substance: PERAMPANEL
     Indication: PRODUCT USED FOR UNKNOWN INDICATION
     Dosage: 12 MILLIGRAM (1 TOTAL)
     Route: 048
     Dates: start: 20200107, end: 20200107
  4. CITALOPRAM [Suspect]
     Active Substance: CITALOPRAM HYDROBROMIDE
     Indication: PRODUCT USED FOR UNKNOWN INDICATION
     Dosage: 380 MILLIGRAM (1 TOTAL)
     Route: 065
     Dates: start: 20200107, end: 20200107
  5. METAMIZOL [Suspect]
     Active Substance: METAMIZOLE SODIUM
     Indication: PRODUCT USED FOR UNKNOWN INDICATION
     Dosage: 9500 MILLIGRAM (1 TOTAL)
     Route: 065
     Dates: start: 20200107, end: 20200107
  6. ZONEGRAN [Suspect]
     Active Substance: ZONISAMIDE
     Indication: PRODUCT USED FOR UNKNOWN INDICATION
     Dosage: 2800 MILLIGRAM (1 TOTAL)
     Route: 048
     Dates: start: 20200107, end: 20200107
  7. LACOSAMIDE. [Suspect]
     Active Substance: LACOSAMIDE
     Indication: PRODUCT USED FOR UNKNOWN INDICATION
     Dosage: 5600 MILLIGRAM (1 TOTAL)
     Route: 065
     Dates: start: 20200107, end: 20200107

REACTIONS (2)
  - Intentional overdose [Recovering/Resolving]
  - Suicide attempt [Recovering/Resolving]

NARRATIVE: CASE EVENT DATE: 20200107
